FAERS Safety Report 7441821-0 (Version None)
Quarter: 2011Q2

REPORT INFORMATION
  Report Type: 
  Country: None (occurrence: None)
  Receive Date: 20110419
  Receipt Date: 20110413
  Transmission Date: 20111010
  Serious: Yes (Death)
  Sender: FDA-Public Use
  Company Number: WAES 1101DEU00023

PATIENT
  Age: 69 Year
  Sex: Male

DRUGS (2)
  1. ITRACONAZOLE [Concomitant]
  2. CASPOFUNGIN ACETATE [Suspect]
     Indication: ASPERGILLOSIS
     Dosage: 50 MG/DAILY/IV
     Route: 042

REACTIONS (1)
  - PNEUMONIA [None]
